FAERS Safety Report 7046345-0 (Version None)
Quarter: 2010Q4

REPORT INFORMATION
  Report Type: 
  Country: None (occurrence: None)
  Receive Date: 20101014
  Receipt Date: 20101005
  Transmission Date: 20110411
  Serious: Yes (Hospitalization)
  Sender: FDA-Public Use
  Company Number: US-ABBOTT-10P-163-0672073-00

PATIENT
  Sex: Male
  Weight: 62.652 kg

DRUGS (14)
  1. HUMIRA [Suspect]
     Indication: RHEUMATOID ARTHRITIS
     Route: 058
     Dates: start: 20080401, end: 20100906
  2. HUMIRA [Suspect]
     Route: 058
     Dates: start: 20080401, end: 20081001
  3. METHOTREXATE [Concomitant]
     Indication: PRODUCT USED FOR UNKNOWN INDICATION
     Dates: end: 20100906
  4. ALENDRONATE SODIUM [Concomitant]
     Indication: BONE DENSITY ABNORMAL
  5. HYDROCHLOROTHIAZIDE [Concomitant]
     Indication: HYPERTENSION
  6. LISINOPRIL [Concomitant]
     Indication: HYPERTENSION
  7. MECLIZINE [Concomitant]
     Indication: VERTIGO
     Dosage: 1 EVERY 4 HOURS PRN
  8. SERTRALINE HYDROCHLORIDE [Concomitant]
     Indication: DEPRESSION
  9. MOXIFLOXATIN [Concomitant]
     Indication: PRODUCT USED FOR UNKNOWN INDICATION
  10. SPIRIVA [Concomitant]
     Indication: EMPHYSEMA
  11. PAIN PILL [Concomitant]
     Indication: PRODUCT USED FOR UNKNOWN INDICATION
  12. BONE DENSITY PILL [Concomitant]
     Indication: PRODUCT USED FOR UNKNOWN INDICATION
  13. WATER PILL [Concomitant]
     Indication: PRODUCT USED FOR UNKNOWN INDICATION
  14. BLOOD PRESSURE PILL [Concomitant]
     Indication: PRODUCT USED FOR UNKNOWN INDICATION

REACTIONS (11)
  - ASTHENIA [None]
  - CHEST PAIN [None]
  - CHILLS [None]
  - DECREASED APPETITE [None]
  - FEELING COLD [None]
  - HYPERHIDROSIS [None]
  - LUNG DISORDER [None]
  - MALAISE [None]
  - MOBILITY DECREASED [None]
  - PNEUMONIA [None]
  - WEIGHT DECREASED [None]
